FAERS Safety Report 9815937 (Version 1)
Quarter: 2014Q1

REPORT INFORMATION
  Report Type: Spontaneous
  Country: US (occurrence: US)
  Receive Date: 20140114
  Receipt Date: 20140114
  Transmission Date: 20141002
  Serious: Yes (Other)
  Sender: FDA-Public Use
  Company Number: US-BAYER-2014-002896

PATIENT
  Age: 70 Year
  Sex: Male
  Weight: 86.17 kg

DRUGS (1)
  1. ALEVE TABLET [Suspect]
     Route: 048

REACTIONS (1)
  - Intestinal haemorrhage [Not Recovered/Not Resolved]
